FAERS Safety Report 4767786-8 (Version None)
Quarter: 2005Q3

REPORT INFORMATION
  Report Type: 
  Country: None (occurrence: None)
  Receive Date: 20050912
  Receipt Date: 20050907
  Transmission Date: 20060218
  Serious: Yes (Death)
  Sender: FDA-Public Use
  Company Number: TCI2005A03118

PATIENT
  Age: 69 Year
  Sex: Male

DRUGS (9)
  1. ACTOS [Suspect]
     Indication: DIABETES MELLITUS
     Dosage: 30 MG (15 MG, 2 IN 1 D) PER ORAL
     Route: 048
     Dates: start: 20050519, end: 20050611
  2. DORNER (BERAPROST SODIUM) [Concomitant]
  3. ANPLAG (SARPOGRELATE HYDROCHLORIDE) [Concomitant]
  4. ADALAT [Concomitant]
  5. TICLOPIDINE HCL [Concomitant]
  6. BEZATOL SR (BEZAFIBRATE) [Concomitant]
  7. DIGOXIN [Concomitant]
  8. WARFARIN SODIUM [Concomitant]
  9. TANATRIL (IMIDAPRIL HYDROCHLORIDE) [Concomitant]

REACTIONS (2)
  - MYOCARDIAL INFARCTION [None]
  - SUDDEN DEATH [None]
